FAERS Safety Report 10312660 (Version 1)
Quarter: 2014Q3

REPORT INFORMATION
  Report Type: Spontaneous
  Country: CA (occurrence: CA)
  Receive Date: 20140718
  Receipt Date: 20140718
  Transmission Date: 20150326
  Serious: Yes (Other)
  Sender: FDA-Public Use
  Company Number: CA-ROCHE-1434658

PATIENT
  Age: 52 Year
  Sex: Female

DRUGS (3)
  1. ERBITUX [Suspect]
     Active Substance: CETUXIMAB
     Indication: PRODUCT USED FOR UNKNOWN INDICATION
     Dosage: SOLUTION INTRAVENOUS
     Route: 042
  2. BENADRYL [Concomitant]
     Active Substance: DIPHENHYDRAMINE HYDROCHLORIDE
  3. AVASTIN [Suspect]
     Active Substance: BEVACIZUMAB
     Indication: PRODUCT USED FOR UNKNOWN INDICATION
     Dosage: SOLUTION
     Route: 042

REACTIONS (9)
  - Rash generalised [Unknown]
  - Metastasis [Unknown]
  - Blood pressure diastolic increased [Unknown]
  - Rales [Unknown]
  - Restlessness [Unknown]
  - Palmar-plantar erythrodysaesthesia syndrome [Unknown]
  - Heart rate increased [Unknown]
  - Stomatitis [Unknown]
  - Mucosal inflammation [Unknown]
